FAERS Safety Report 12449259 (Version 2)
Quarter: 2016Q2

REPORT INFORMATION
  Report Type: Spontaneous
  Country: DE (occurrence: DE)
  Receive Date: 20160608
  Receipt Date: 20160627
  Transmission Date: 20160815
  Serious: Yes (Other)
  Sender: FDA-Public Use
  Company Number: DE-ALLERGAN-1657201US

PATIENT
  Age: 47 Year
  Sex: Female

DRUGS (1)
  1. ESMYA [Suspect]
     Active Substance: ULIPRISTAL ACETATE
     Indication: UTERINE LEIOMYOMA
     Dosage: 5 MG, QD
     Route: 048
     Dates: start: 20160216, end: 20160420

REACTIONS (4)
  - Wrong technique in product usage process [Unknown]
  - Adenomyosis [Recovered/Resolved]
  - Uterine haemorrhage [Recovered/Resolved]
  - Endometrial thickening [Recovered/Resolved]

NARRATIVE: CASE EVENT DATE: 20160414
